FAERS Safety Report 4428725-2 (Version None)
Quarter: 2004Q3

REPORT INFORMATION
  Report Type: 
  Country: None (occurrence: None)
  Receive Date: 20040818
  Receipt Date: 20040217
  Transmission Date: 20050211
  Serious: Yes (Hospitalization)
  Sender: FDA-Public Use
  Company Number: US-BRISTOL-MYERS SQUIBB COMPANY-12509790

PATIENT
  Age: 2 Decade
  Sex: Female

DRUGS (1)
  1. TEQUIN [Suspect]
     Indication: BRONCHITIS

REACTIONS (1)
  - PSYCHOTIC DISORDER [None]
